FAERS Safety Report 9454345 (Version 2)
Quarter: 2013Q4

REPORT INFORMATION
  Report Type: Report from Study
  Country: AR (occurrence: AR)
  Receive Date: 20130812
  Receipt Date: 20131219
  Transmission Date: 20140711
  Serious: Yes (Other)
  Sender: FDA-Public Use
  Company Number: AR-US-EMD SERONO, INC.-7228367

PATIENT
  Sex: Male

DRUGS (1)
  1. REBIF [Suspect]
     Indication: MULTIPLE SCLEROSIS
     Dates: start: 20111130

REACTIONS (8)
  - Brain neoplasm [Unknown]
  - Convulsion [Not Recovered/Not Resolved]
  - Multiple sclerosis relapse [Unknown]
  - Application site discolouration [Unknown]
  - Application site induration [Unknown]
  - Application site pain [Unknown]
  - Pyrexia [Unknown]
  - Headache [Not Recovered/Not Resolved]
